FAERS Safety Report 25528575 (Version 2)
Quarter: 2025Q3

REPORT INFORMATION
  Report Type: Report from Study
  Country: US (occurrence: US)
  Receive Date: 20250708
  Receipt Date: 20250723
  Transmission Date: 20251021
  Serious: Yes (Hospitalization)
  Sender: ABBVIE
  Company Number: US-ABBVIE-6344682

PATIENT
  Age: 92 Year
  Sex: Female
  Weight: 80.739 kg

DRUGS (2)
  1. HUMIRA [Suspect]
     Active Substance: ADALIMUMAB
     Indication: Rheumatoid arthritis
     Dosage: FORM STRENGTH: 40 MG?DRUG START: 15 TO 20 YEARS AGO
     Route: 058
     Dates: start: 2005, end: 202505
  2. HUMIRA [Suspect]
     Active Substance: ADALIMUMAB
     Dosage: FORM STRENGTH: 40MILLIGRAM
     Route: 058
     Dates: start: 202505

REACTIONS (4)
  - Hypotension [Recovered/Resolved]
  - COVID-19 [Recovered/Resolved]
  - Syncope [Recovered/Resolved]
  - Hypoacusis [Not Recovered/Not Resolved]

NARRATIVE: CASE EVENT DATE: 20100101
